FAERS Safety Report 23014626 (Version 1)
Quarter: 2023Q4

REPORT INFORMATION
  Report Type: Other
  Country: DE (occurrence: DE)
  Receive Date: 20231002
  Receipt Date: 20231002
  Transmission Date: 20240110
  Serious: Yes (Other)
  Sender: FDA-Public Use
  Company Number: DE-002147023-NVSC2023DE205345

PATIENT

DRUGS (1)
  1. RANIBIZUMAB [Suspect]
     Active Substance: RANIBIZUMAB
     Indication: Retinopathy of prematurity
     Dosage: UNK
     Route: 065
     Dates: start: 2021

REACTIONS (1)
  - Corneal erosion [Unknown]
